FAERS Safety Report 15307131 (Version 1)
Quarter: 2018Q3

REPORT INFORMATION
  Report Type: Report from Study
  Country: BR (occurrence: BR)
  Receive Date: 20180822
  Receipt Date: 20180822
  Transmission Date: 20181010
  Serious: Yes (Hospitalization)
  Sender: FDA-Public Use
  Company Number: BR-BIOGEN-2018BI00622368

PATIENT
  Sex: Male

DRUGS (1)
  1. TYSABRI [Suspect]
     Active Substance: NATALIZUMAB
     Indication: MULTIPLE SCLEROSIS
     Dosage: INFUSED OVER 1 HOUR
     Route: 042
     Dates: start: 20120301

REACTIONS (6)
  - Anxiety [Unknown]
  - Multiple sclerosis relapse [Recovered/Resolved]
  - Nervousness [Unknown]
  - Therapeutic response shortened [Unknown]
  - Stress [Not Recovered/Not Resolved]
  - Hypoaesthesia [Recovered/Resolved]
